FAERS Safety Report 19929993 (Version 2)
Quarter: 2021Q4

REPORT INFORMATION
  Report Type: Report from Study
  Country: US (occurrence: US)
  Receive Date: 20211007
  Receipt Date: 20211103
  Transmission Date: 20220303
  Serious: Yes (Death, Other)
  Sender: FDA-Public Use
  Company Number: US-ACADIA PHARMACEUTICALS INC.-ACA-2021-PIM-003502

PATIENT
  Age: 87 Year
  Sex: Female

DRUGS (3)
  1. NUPLAZID [Suspect]
     Active Substance: PIMAVANSERIN TARTRATE
     Indication: Parkinson^s disease
     Dosage: 34 MILLIGRAM, QD
     Route: 048
     Dates: start: 201903, end: 202108
  2. DONEPEZIL [Concomitant]
     Active Substance: DONEPEZIL
     Dosage: UNK
     Dates: start: 201812
  3. SINEMET [Concomitant]
     Active Substance: CARBIDOPA\LEVODOPA
     Dosage: UNK
     Dates: start: 2007

REACTIONS (1)
  - Death [Fatal]

NARRATIVE: CASE EVENT DATE: 20210830
